FAERS Safety Report 16693213 (Version 2)
Quarter: 2020Q4

REPORT INFORMATION
  Report Type: Report from Study
  Country: BG (occurrence: BG)
  Receive Date: 20190812
  Receipt Date: 20201217
  Transmission Date: 20210113
  Serious: Yes (Hospitalization)
  Sender: FDA-Public Use
  Company Number: BG-MYLANLABS-2019M1074410

PATIENT
  Age: 60 Year
  Sex: Female
  Weight: 72 kg

DRUGS (9)
  1. PERTUZUMAB. [Suspect]
     Active Substance: PERTUZUMAB
     Indication: HER2 POSITIVE BREAST CANCER
     Dosage: MOST RECENT DOSE PRIOR TO THE EVENT ON 14/NOV/2018
     Route: 042
     Dates: start: 20181024
  2. TAXOTERE [Suspect]
     Active Substance: DOCETAXEL
     Indication: HER2 POSITIVE BREAST CANCER
     Dosage: 75 MILLIGRAM/SQ. METER, Q3W
     Route: 042
     Dates: start: 20181024
  3. ZOLEDRONIC ACID [Suspect]
     Active Substance: ZOLEDRONIC ACID
     Indication: HER2 POSITIVE BREAST CANCER
     Dosage: 4 MILLIGRAM (ON 28/DEC/2018, RECEIVED MOST RECENT DOSE ZOLEDRONIC ACID)
     Route: 042
     Dates: start: 20181002
  4. RAMIPRIL. [Concomitant]
     Active Substance: RAMIPRIL
     Dosage: ONGOING = CHECKED
     Route: 065
  5. AMLODIPINE [Concomitant]
     Active Substance: AMLODIPINE BESYLATE
     Dosage: ONGOING = CHECKED
     Route: 065
  6. METOPROLOL. [Concomitant]
     Active Substance: METOPROLOL
     Dosage: UNK
  7. L-THYROXIN                         /00068001/ [Concomitant]
     Active Substance: LEVOTHYROXINE
     Dosage: ONGOING = CHECKED
     Route: 065
  8. TRASTUZUMAB. [Suspect]
     Active Substance: TRASTUZUMAB
     Indication: HER2 POSITIVE BREAST CANCER
     Dosage: MOST RECENT DOSE PRIOR TO THE EVENT ON 14/NOV/2018
     Route: 042
     Dates: start: 20181024
  9. DOCETAXEL. [Suspect]
     Active Substance: DOCETAXEL
     Indication: HER2 POSITIVE BREAST CANCER
     Dosage: 75 MILLIGRAM/SQ. METER, Q3W (ON 19/JAN/2019, RECEIVED MOST RECENT DOSE OF DOCETAXEL)
     Route: 042
     Dates: start: 20181024

REACTIONS (1)
  - Apical granuloma [Recovered/Resolved]

NARRATIVE: CASE EVENT DATE: 20190208
